FAERS Safety Report 9710542 (Version 1)
Quarter: 2013Q4

REPORT INFORMATION
  Report Type: Spontaneous
  Country: US (occurrence: US)
  Receive Date: 20131126
  Receipt Date: 20131126
  Transmission Date: 20140711
  Serious: No
  Sender: FDA-Public Use
  Company Number: US-BRISTOL-MYERS SQUIBB COMPANY-18875674

PATIENT
  Age: 44 Year
  Sex: Female

DRUGS (1)
  1. BYETTA PEN DISPOSABLE [Suspect]
     Indication: TYPE 2 DIABETES MELLITUS
     Dosage: THERAPY ON 6MAY13
     Dates: start: 2013

REACTIONS (4)
  - Product quality issue [Unknown]
  - Overdose [Unknown]
  - Nausea [Unknown]
  - Blood glucose abnormal [Unknown]
